FAERS Safety Report 7981165-1 (Version None)
Quarter: 2011Q4

REPORT INFORMATION
  Report Type: 
  Country: None (occurrence: None)
  Receive Date: 20111129
  Receipt Date: 20110706
  Transmission Date: 20120403
  Serious: Yes (Other)
  Sender: FDA-Public Use
  Company Number: PHHY2011US37660

PATIENT
  Age: 60 Year
  Sex: Female

DRUGS (7)
  1. LAMISIL [Suspect]
     Indication: ONYCHOMYCOSIS
     Dosage: 250 MG, QD, ORAL
     Route: 048
     Dates: start: 20110317
  2. METFORMIN HCL [Concomitant]
  3. VITAMIN D [Concomitant]
  4. SYNTHROID [Concomitant]
  5. THYROID TAB [Concomitant]
  6. PROMETRIUM [Concomitant]
  7. TOPAMAX [Concomitant]

REACTIONS (7)
  - BURNING SENSATION [None]
  - GLOSSODYNIA [None]
  - OEDEMA MOUTH [None]
  - LIP SWELLING [None]
  - SWOLLEN TONGUE [None]
  - ORAL DISCOMFORT [None]
  - PARAESTHESIA ORAL [None]
